FAERS Safety Report 4932433-9 (Version None)
Quarter: 2006Q1

REPORT INFORMATION
  Report Type: 
  Country: None (occurrence: None)
  Receive Date: 20060301
  Receipt Date: 20060216
  Transmission Date: 20060701
  Serious: Yes (Other)
  Sender: FDA-Public Use
  Company Number: 2005166595

PATIENT
  Age: 74 Year
  Sex: Female
  Weight: 50 kg

DRUGS (5)
  1. SULFASALAZINE [Suspect]
     Indication: POLYARTHRITIS
     Dosage: 3 GRAM (500 MG DAILY) ORAL
     Route: 048
     Dates: start: 19900101
  2. VALSARTAN [Concomitant]
  3. FELCAINE (FLECAINIDE ACETATE) [Concomitant]
  4. ASPIRIN [Concomitant]
  5. OMEPRAZOLE [Concomitant]

REACTIONS (8)
  - ABDOMINAL PAIN UPPER [None]
  - ARRHYTHMIA [None]
  - GASTRIC DISORDER [None]
  - HOT FLUSH [None]
  - HYPERTENSION [None]
  - HYPERTHYROIDISM [None]
  - PHOBIA [None]
  - PRURITUS [None]
